FAERS Safety Report 20197918 (Version 4)
Quarter: 2024Q1

REPORT INFORMATION
  Report Type: Report from Study
  Country: DE (occurrence: DE)
  Receive Date: 20211217
  Receipt Date: 20240228
  Transmission Date: 20240409
  Serious: Yes (Death, Hospitalization)
  Sender: FDA-Public Use
  Company Number: DE-BoehringerIngelheim-2021-BI-140118

PATIENT
  Age: 65 Year
  Sex: Female
  Weight: 73 kg

DRUGS (2)
  1. DOCETAXEL [Suspect]
     Active Substance: DOCETAXEL\DOCETAXEL ANHYDROUS
     Indication: Lung adenocarcinoma
     Dosage: DOSAGE TEXT:  BSA ,LIQUID
     Route: 065
     Dates: start: 20210924, end: 20210924
  2. NINTEDANIB [Suspect]
     Active Substance: NINTEDANIB
     Indication: Lung adenocarcinoma
     Dosage: DOSAGE TEXT: 200 MG
     Route: 065
     Dates: start: 20210923, end: 20210923

REACTIONS (1)
  - Pneumonitis [Fatal]

NARRATIVE: CASE EVENT DATE: 20211012
